FAERS Safety Report 5693252-1 (Version None)
Quarter: 2008Q2

REPORT INFORMATION
  Report Type: 
  Country: None (occurrence: None)
  Receive Date: 20080403
  Receipt Date: 20080325
  Transmission Date: 20081010
  Serious: Yes (Other)
  Sender: FDA-Public Use
  Company Number: PHHY2008JP03811

PATIENT
  Age: 70 Year
  Sex: Female

DRUGS (2)
  1. SALAGEN [Suspect]
     Indication: DRY MOUTH
     Route: 048
  2. TS 1 [Concomitant]

REACTIONS (1)
  - ANOREXIA [None]
